FAERS Safety Report 19442985 (Version 8)
Quarter: 2024Q1

REPORT INFORMATION
  Report Type: Spontaneous
  Country: US (occurrence: US)
  Receive Date: 20210621
  Receipt Date: 20240205
  Transmission Date: 20240410
  Serious: Yes (Hospitalization, Disabling, Other)
  Sender: FDA-Public Use
  Company Number: US-ORGANON-O2106USA001601

PATIENT
  Sex: Male

DRUGS (2)
  1. SINGULAIR [Suspect]
     Active Substance: MONTELUKAST SODIUM
     Indication: Asthma
     Dosage: 5 MILLIGRAM, QPM
     Route: 048
     Dates: start: 2009
  2. SINGULAIR [Suspect]
     Active Substance: MONTELUKAST SODIUM
     Indication: Asthma
     Dosage: 10 MILLIGRAM, QD
     Route: 048
     Dates: end: 2017

REACTIONS (33)
  - Neuropsychological symptoms [Not Recovered/Not Resolved]
  - Major depression [Not Recovered/Not Resolved]
  - Mental disorder [Unknown]
  - Suicide attempt [Unknown]
  - Intentional self-injury [Unknown]
  - Hallucination [Recovered/Resolved]
  - Suicidal ideation [Recovered/Resolved]
  - Anxiety [Not Recovered/Not Resolved]
  - Depression [Not Recovered/Not Resolved]
  - Suicidal ideation [Not Recovered/Not Resolved]
  - Panic disorder [Not Recovered/Not Resolved]
  - Depressed mood [Not Recovered/Not Resolved]
  - Sleep disorder [Not Recovered/Not Resolved]
  - Feeling of despair [Not Recovered/Not Resolved]
  - Impulse-control disorder [Not Recovered/Not Resolved]
  - Borderline personality disorder [Not Recovered/Not Resolved]
  - Speech sound disorder [Unknown]
  - Attention deficit hyperactivity disorder [Unknown]
  - Sleep disorder [Unknown]
  - Anger [Unknown]
  - Generalised anxiety disorder [Not Recovered/Not Resolved]
  - Nightmare [Unknown]
  - Aggression [Unknown]
  - Agitation [Unknown]
  - Migraine [Not Recovered/Not Resolved]
  - Anger [Unknown]
  - Frustration tolerance decreased [Unknown]
  - Feeling abnormal [Not Recovered/Not Resolved]
  - Negative thoughts [Unknown]
  - Thinking abnormal [Unknown]
  - Insomnia [Not Recovered/Not Resolved]
  - Crying [Unknown]
  - Affective disorder [Unknown]

NARRATIVE: CASE EVENT DATE: 20120101
